FAERS Safety Report 15698992 (Version 1)
Quarter: 2018Q4

REPORT INFORMATION
  Report Type: Spontaneous
  Country: CA (occurrence: CA)
  Receive Date: 20181207
  Receipt Date: 20181207
  Transmission Date: 20190205
  Serious: Yes (Other)
  Sender: FDA-Public Use
  Company Number: CA-TEVA-2018-CA-968301

PATIENT
  Age: 77 Year
  Sex: Female

DRUGS (10)
  1. ACT CIPROFLOXACIN [Suspect]
     Active Substance: CIPROFLOXACIN
     Indication: DIVERTICULITIS
     Dosage: 1000 MILLIGRAM DAILY;
     Route: 048
     Dates: start: 20181013, end: 20181014
  2. COLCHICINE. [Concomitant]
     Active Substance: COLCHICINE
  3. OMEPRAZOLE. [Concomitant]
     Active Substance: OMEPRAZOLE
     Dosage: 20 MILLIGRAM DAILY;
  4. METFORMIN [Concomitant]
     Active Substance: METFORMIN HYDROCHLORIDE
     Dosage: 2 GRAM DAILY;
  5. SYNTHROID [Concomitant]
     Active Substance: LEVOTHYROXINE SODIUM
     Dosage: 50 MICROGRAM DAILY;
  6. ATORVASTATIN [Concomitant]
     Active Substance: ATORVASTATIN
     Dosage: 10 MILLIGRAM DAILY;
  7. DIAMICRON MR (GLICLAZIDE) [Concomitant]
     Dosage: 2 TABLETS/DAY
  8. QUINAPRIL. [Concomitant]
     Active Substance: QUINAPRIL
     Dosage: 40 MILLIGRAM DAILY;
  9. ATENOLOL. [Concomitant]
     Active Substance: ATENOLOL
     Dosage: 50  DAILY;
  10. HYDROCHLOROTHIAZIDE. [Concomitant]
     Active Substance: HYDROCHLOROTHIAZIDE
     Dosage: 12.5 MILLIGRAM DAILY;

REACTIONS (3)
  - Arthralgia [Not Recovered/Not Resolved]
  - Back pain [Not Recovered/Not Resolved]
  - Burning sensation [Not Recovered/Not Resolved]

NARRATIVE: CASE EVENT DATE: 201810
